FAERS Safety Report 4587796-3 (Version None)
Quarter: 2005Q1

REPORT INFORMATION
  Report Type: 
  Country: None (occurrence: None)
  Receive Date: 20050125
  Receipt Date: 20040818
  Transmission Date: 20050727
  Serious: No
  Sender: FDA-Public Use
  Company Number: USA030740956

PATIENT
  Age: 79 Year
  Sex: Female

DRUGS (7)
  1. FORTEO [Suspect]
     Indication: OSTEOPOROSIS
     Dosage: 20 UG/L DAY
     Dates: start: 20030601
  2. MIACALCIN [Concomitant]
  3. CALCIUM GLUCONATE [Concomitant]
  4. DYAZIDE [Concomitant]
  5. LOPID [Concomitant]
  6. LEVOXYL [Concomitant]
  7. VITAMIN D [Concomitant]

REACTIONS (2)
  - BONE DENSITY DECREASED [None]
  - INJECTION SITE DISCOLOURATION [None]
